FAERS Safety Report 6420958-9 (Version None)
Quarter: 2009Q4

REPORT INFORMATION
  Report Type: 
  Country: None (occurrence: None)
  Receive Date: 20091030
  Receipt Date: 20091023
  Transmission Date: 20100525
  Serious: Yes (Death)
  Sender: FDA-Public Use
  Company Number: BR-ROCHE-659842

PATIENT
  Sex: Female
  Weight: 61 kg

DRUGS (9)
  1. CAPECITABINE [Suspect]
     Indication: BREAST CANCER
     Route: 048
     Dates: start: 20090528, end: 20090809
  2. HYDROCHLOROTHIAZIDE [Concomitant]
     Indication: HYPERTENSION
     Route: 048
     Dates: start: 20021201, end: 20090808
  3. HYDROCHLOROTHIAZIDE [Concomitant]
     Route: 048
     Dates: start: 20090809, end: 20090811
  4. PROPRANOLOL [Concomitant]
     Indication: HYPERTENSION
     Route: 048
     Dates: start: 20021201, end: 20090808
  5. PROPRANOLOL [Concomitant]
     Route: 048
     Dates: start: 20090809, end: 20090809
  6. PROPRANOLOL [Concomitant]
     Route: 048
     Dates: start: 20090810, end: 20090810
  7. PERMETHRIN [Concomitant]
     Route: 061
     Dates: start: 20090604, end: 20090606
  8. DIMOR [Concomitant]
     Indication: ABDOMINAL PAIN
     Route: 042
  9. GLUCOSE [Concomitant]
     Route: 042

REACTIONS (1)
  - CARDIOGENIC SHOCK [None]
